FAERS Safety Report 13072883 (Version 2)
Quarter: 2018Q1

REPORT INFORMATION
  Report Type: Spontaneous
  Country: US (occurrence: US)
  Receive Date: 20161229
  Receipt Date: 20180115
  Transmission Date: 20180508
  Serious: Yes (Other)
  Sender: FDA-Public Use
  Company Number: US-SA-2016SA215782

PATIENT
  Age: 61 Year
  Sex: Female
  Weight: 94.34 kg

DRUGS (5)
  1. TAXOTERE [Suspect]
     Active Substance: DOCETAXEL
     Indication: BREAST CANCER
     Route: 051
     Dates: start: 20140702, end: 20140702
  2. TAXOTERE [Suspect]
     Active Substance: DOCETAXEL
     Indication: BREAST CANCER
     Route: 051
     Dates: start: 20141028, end: 20141028
  3. GLIPIZIDE. [Concomitant]
     Active Substance: GLIPIZIDE
     Route: 065
     Dates: start: 20150101
  4. METFORMIN [Concomitant]
     Active Substance: METFORMIN HYDROCHLORIDE
     Route: 065
     Dates: start: 20150101
  5. HYDROCHLOROTHIAZIDE. [Concomitant]
     Active Substance: HYDROCHLOROTHIAZIDE
     Route: 065
     Dates: start: 20070101

REACTIONS (7)
  - Quality of life decreased [Unknown]
  - Emotional distress [Unknown]
  - Pain [Unknown]
  - Alopecia [Unknown]
  - Injury [Unknown]
  - Anxiety [Unknown]
  - Discomfort [Unknown]

NARRATIVE: CASE EVENT DATE: 20150801
